FAERS Safety Report 6706136-4 (Version None)
Quarter: 2010Q2

REPORT INFORMATION
  Report Type: 
  Country: None (occurrence: None)
  Receive Date: 20100503
  Receipt Date: 20100422
  Transmission Date: 20101027
  Serious: Yes (Other)
  Sender: FDA-Public Use
  Company Number: GB-PFIZER INC-2010050834

PATIENT
  Age: 70 Year
  Sex: Male

DRUGS (5)
  1. CHAMPIX [Suspect]
     Indication: SMOKING CESSATION THERAPY
     Dosage: 0.5 MG, UNK
     Route: 048
     Dates: start: 20100301, end: 20100331
  2. CHAMPIX [Suspect]
     Dosage: 1 MG, UNK
     Route: 048
     Dates: start: 20100301, end: 20100331
  3. BUDESONIDE [Concomitant]
     Route: 055
  4. PREDNISOLONE [Concomitant]
     Indication: LOWER RESPIRATORY TRACT INFECTION
     Dosage: 5 MG, UNK
     Route: 048
     Dates: start: 20100129, end: 20100204
  5. TERBUTALINE [Concomitant]
     Route: 055

REACTIONS (6)
  - DIARRHOEA [None]
  - GINGIVAL BLEEDING [None]
  - HEADACHE [None]
  - PAIN [None]
  - TREMOR [None]
  - VOMITING [None]
